FAERS Safety Report 4924390-6 (Version None)
Quarter: 2006Q1

REPORT INFORMATION
  Report Type: 
  Country: None (occurrence: None)
  Receive Date: 20060227
  Receipt Date: 20060130
  Transmission Date: 20060701
  Serious: No
  Sender: FDA-Public Use
  Company Number: US-GLAXOSMITHKLINE-A0591514A

PATIENT
  Age: 60 Year
  Sex: Male

DRUGS (3)
  1. WELLBUTRIN XL [Suspect]
     Indication: DEPRESSION
     Route: 048
     Dates: start: 20040101
  2. LOTENSIN [Concomitant]
  3. TERAZOSIN [Concomitant]

REACTIONS (1)
  - LINEAR IGA DISEASE [None]
